FAERS Safety Report 4442288-7 (Version None)
Quarter: 2004Q3

REPORT INFORMATION
  Report Type: 
  Country: None (occurrence: None)
  Receive Date: 20040903
  Receipt Date: 20040513
  Transmission Date: 20050211
  Serious: Yes (Other)
  Sender: FDA-Public Use
  Company Number: 2004UW06922

PATIENT
  Age: 53 Year
  Sex: Male
  Weight: 111.1313 kg

DRUGS (3)
  1. CRESTOR [Suspect]
     Indication: HYPERCHOLESTEROLAEMIA
     Dosage: 10 MG QD PO
     Route: 048
     Dates: start: 20040116, end: 20040308
  2. ASPIRIN [Concomitant]
  3. FOLIC ACID [Concomitant]

REACTIONS (1)
  - AGEUSIA [None]
